FAERS Safety Report 5061593-7 (Version None)
Quarter: 2006Q3

REPORT INFORMATION
  Report Type: 
  Country: None (occurrence: None)
  Receive Date: 20060720
  Receipt Date: 20060718
  Transmission Date: 20061208
  Serious: Yes (Hospitalization, Other)
  Sender: FDA-Public Use
  Company Number: HQWYE163103JAN06

PATIENT
  Age: 50 Year
  Sex: Male

DRUGS (10)
  1. RAPAMUNE [Suspect]
     Indication: PROPHYLAXIS AGAINST TRANSPLANT REJECTION
     Dosage: 12 MG 1X PER DAY, ORAL
     Route: 048
     Dates: start: 20040725
  2. MYCOPHENOLATE MOFETIL [Suspect]
     Indication: PROPHYLAXIS AGAINST TRANSPLANT REJECTION
     Dosage: 500 TWICE A DAY,  ORAL
     Route: 048
     Dates: end: 20051201
  3. PREDNISONE TAB [Suspect]
     Indication: PROPHYLAXIS AGAINST TRANSPLANT REJECTION
     Dosage: 10  MG 1X PER 1 DAY, ORAL
     Route: 048
  4. ZENAPAX [Suspect]
     Indication: PROPHYLAXIS AGAINST TRANSPLANT REJECTION
  5. DIOVAN [Concomitant]
  6. ATENOLOL [Concomitant]
  7. BACTRIM [Concomitant]
  8. ZOCOR [Concomitant]
  9. NOVOLOG [Concomitant]
  10. PEPCID [Concomitant]

REACTIONS (17)
  - AORTIC DILATATION [None]
  - BACTERIA URINE IDENTIFIED [None]
  - BLOOD CHLORIDE INCREASED [None]
  - BLOOD CREATININE INCREASED [None]
  - BLOOD UREA INCREASED [None]
  - CANDIDIASIS [None]
  - CARBON DIOXIDE DECREASED [None]
  - CLOSTRIDIUM DIFFICILE COLITIS [None]
  - HYPERKALAEMIA [None]
  - MEDIASTINAL DISORDER [None]
  - METABOLIC ACIDOSIS [None]
  - NAUSEA [None]
  - PNEUMONITIS [None]
  - PROTEIN URINE PRESENT [None]
  - SPUTUM CULTURE POSITIVE [None]
  - VOMITING [None]
  - WHITE BLOOD CELLS URINE POSITIVE [None]
